FAERS Safety Report 8812195 (Version 1)
Quarter: 2012Q4

REPORT INFORMATION
  Report Type: 
  Country: US (occurrence: US)
  Receive Date: 20120927
  Receipt Date: 20120927
  Transmission Date: 20130627
  Serious: Yes (Death)
  Sender: FDA-Public Use
  Company Number: US-INCYTE CORPORATION-2012IN001851

PATIENT
  Age: 69 Year
  Sex: Female

DRUGS (12)
  1. JAKAFI [Suspect]
     Indication: MYELOFIBROSIS
     Dosage: 20 mg, bid
     Route: 048
  2. DILANTIN [Concomitant]
     Dosage: 100 mg, tid
  3. PLAVIX [Concomitant]
     Dosage: 75 mg, qd
  4. NORVASC [Concomitant]
     Dosage: 5 mg, qd
  5. PREDNISONE [Concomitant]
     Dosage: 5 mg, qd
  6. VENLAFAXINE [Concomitant]
     Dosage: 37.5 mg, tid
  7. ZOLPIDEM [Concomitant]
     Dosage: 5 mg, prn
  8. VICODIN [Concomitant]
     Dosage: 750 mg, prn (up to five tablets per day)
  9. HYDROCHLOROTHIAZIDE [Concomitant]
     Dosage: 25 mg, qd
  10. OCUVITE [Concomitant]
     Dosage: 1 tablet, qd
  11. FERROUS SULFATE [Concomitant]
     Dosage: 325 mg, qd
  12. CALCIUM + VITAMIN D [Concomitant]
     Dosage: 600 mg, tid

REACTIONS (1)
  - Death [Fatal]
